FAERS Safety Report 18332151 (Version 2)
Quarter: 2020Q4

REPORT INFORMATION
  Report Type: Spontaneous
  Country: CA (occurrence: CA)
  Receive Date: 20201001
  Receipt Date: 20201012
  Transmission Date: 20210113
  Serious: Yes (Other)
  Sender: FDA-Public Use
  Company Number: CA-CELLTRION INC.-2020CA028297

PATIENT

DRUGS (5)
  1. TYLENOL [Concomitant]
     Active Substance: ACETAMINOPHEN
     Indication: PREMEDICATION
     Dosage: UNK
  2. INFLECTRA [Suspect]
     Active Substance: INFLIXIMAB-DYYB
     Indication: CROHN^S DISEASE
     Dosage: 525 MG Q 0, 2, 6 WEEKS, THEN EVERY 8 WEEKS
     Route: 042
     Dates: start: 20200916, end: 20200916
  3. TRAMADOL [TRAMADOL HYDROCHLORIDE] [Concomitant]
     Active Substance: TRAMADOL HYDROCHLORIDE
     Indication: PAIN
     Dosage: AS NEEDED
  4. BENADRYL [Concomitant]
     Active Substance: DIPHENHYDRAMINE HYDROCHLORIDE
     Indication: PREMEDICATION
     Dosage: UNK
  5. ENTOCORT [Concomitant]
     Active Substance: BUDESONIDE
     Dosage: 3 PILLS/DAY 9MG X8WK; 6MG X 2 WKS,3MG X 4WKS
     Route: 065
     Dates: start: 202005

REACTIONS (9)
  - Oropharyngeal pain [Recovered/Resolved]
  - Headache [Unknown]
  - Infusion related reaction [Unknown]
  - Paraesthesia [Unknown]
  - Oral disorder [Unknown]
  - Arthralgia [Unknown]
  - Hyperpyrexia [Unknown]
  - Chest discomfort [Unknown]
  - Pain in jaw [Unknown]

NARRATIVE: CASE EVENT DATE: 20200922
